FAERS Safety Report 4546297-9 (Version None)
Quarter: 2005Q1

REPORT INFORMATION
  Report Type: 
  Country: None (occurrence: None)
  Receive Date: 20050106
  Receipt Date: 20041220
  Transmission Date: 20050727
  Serious: Yes (Other)
  Sender: FDA-Public Use
  Company Number: JP-JNJFOC-20041205283

PATIENT
  Age: 66 Year
  Sex: Female

DRUGS (9)
  1. LEVOFLOXACIN [Suspect]
     Indication: PYELONEPHRITIS
     Route: 049
  2. MYBULEN [Concomitant]
     Route: 049
  3. MYBULEN [Concomitant]
     Route: 049
  4. MYBULEN [Concomitant]
     Indication: PAIN
     Dosage: DOSE: EVERY EVENING
     Route: 049
  5. MYPRADOL [Concomitant]
     Route: 049
     Dates: start: 20041129, end: 20041203
  6. MYPRADOL [Concomitant]
     Indication: PAIN
     Route: 049
     Dates: start: 20041129, end: 20041203
  7. VITAMIN C [Concomitant]
     Dates: start: 20041129, end: 20041203
  8. CONCOR [Concomitant]
     Indication: HYPERTENSION
  9. ELTROXIN [Concomitant]
     Indication: HYPOTHYROIDISM

REACTIONS (3)
  - ARTHRALGIA [None]
  - JOINT SWELLING [None]
  - MYALGIA [None]
